FAERS Safety Report 5166387-X (Version None)
Quarter: 2006Q4

REPORT INFORMATION
  Report Type: 
  Country: None (occurrence: None)
  Receive Date: 20061129
  Receipt Date: 20061117
  Transmission Date: 20070319
  Serious: Yes (Other)
  Sender: FDA-Public Use
  Company Number: T200601333

PATIENT
  Age: 50 Year
  Sex: Female
  Weight: 88 kg

DRUGS (2)
  1. OPTIMARK [Suspect]
     Indication: NUCLEAR MAGNETIC RESONANCE IMAGING
     Dosage: 20 ML, SINGLE, INTRAVENOUS
     Route: 042
     Dates: start: 20061117, end: 20061117
  2. GLUCOPHAGE /00082701/ (METFORMIN) [Concomitant]

REACTIONS (8)
  - ABDOMINAL DISCOMFORT [None]
  - BOWEL MOVEMENT IRREGULARITY [None]
  - CONVULSION [None]
  - DIZZINESS [None]
  - FOAMING AT MOUTH [None]
  - HEADACHE [None]
  - OCULAR HYPERAEMIA [None]
  - VOMITING [None]
